FAERS Safety Report 8446340-0 (Version None)
Quarter: 2012Q2

REPORT INFORMATION
  Report Type: 
  Country: None (occurrence: None)
  Receive Date: 20120618
  Receipt Date: 20120613
  Transmission Date: 20120825
  Serious: Yes (Hospitalization, Disabling, Other)
  Sender: FDA-Public Use
  Company Number: US-CELGENEUS-163-21880-12042385

PATIENT
  Sex: Male
  Weight: 90.346 kg

DRUGS (16)
  1. DIOVAN [Concomitant]
     Dosage: 40 MILLIGRAM
     Route: 048
  2. DIGOXIN [Concomitant]
     Dosage: .25 MILLIGRAM
     Route: 048
  3. DEXAMETHASONE [Concomitant]
     Dosage: 4 MILLIGRAM
     Route: 048
  4. CALCIUM [Concomitant]
     Route: 065
  5. MULTI-VITAMINS [Concomitant]
     Route: 065
  6. FINASTERIDE [Concomitant]
     Dosage: 5 MILLIGRAM
     Route: 048
  7. CALCIUM 500 + D [Concomitant]
     Dosage: 500-400 MG
     Route: 048
  8. ZOMETA [Concomitant]
     Route: 065
  9. COLACE [Concomitant]
     Dosage: 100 MILLIGRAM
     Route: 048
  10. EQ OMEPRAZOLE [Concomitant]
     Dosage: 20 MILLIGRAM
     Route: 048
  11. REVLIMID [Suspect]
     Indication: MULTIPLE MYELOMA
     Dosage: 25 MILLIGRAM
     Route: 048
     Dates: start: 20111210
  12. COUMADIN [Concomitant]
     Dosage: 10 MILLIGRAM
     Route: 048
  13. LEVETIRACETAM [Concomitant]
     Dosage: 1000 MILLIGRAM
     Route: 048
  14. MECLIZINE HCL [Concomitant]
     Indication: DIZZINESS
     Dosage: 25 MILLIGRAM
     Route: 048
  15. ATENOLOL [Concomitant]
     Dosage: 25 MILLIGRAM
     Route: 048
  16. SIMVASTATIN [Concomitant]
     Dosage: 40 MILLIGRAM
     Route: 048

REACTIONS (1)
  - ANEURYSM [None]
